FAERS Safety Report 24691581 (Version 1)
Quarter: 2024Q4

REPORT INFORMATION
  Report Type: Spontaneous
  Country: CN (occurrence: CN)
  Receive Date: 20241203
  Receipt Date: 20241203
  Transmission Date: 20250115
  Serious: Yes (Other)
  Sender: PFIZER
  Company Number: CN-PFIZER INC-PV202400155145

PATIENT
  Age: 18 Year
  Sex: Female
  Weight: 43 kg

DRUGS (4)
  1. METHOTREXATE SODIUM [Suspect]
     Active Substance: METHOTREXATE SODIUM
     Indication: Neoplasm malignant
     Dosage: 14 G, 1X/DAY
     Route: 041
     Dates: start: 20241026, end: 20241026
  2. METHOTREXATE SODIUM [Suspect]
     Active Substance: METHOTREXATE SODIUM
     Indication: Osteosarcoma
  3. VINCRISTINE [Concomitant]
     Active Substance: VINCRISTINE
     Indication: Neoplasm malignant
     Dosage: 2 MG
     Dates: start: 20241026, end: 20241026
  4. VINCRISTINE [Concomitant]
     Active Substance: VINCRISTINE
     Indication: Osteosarcoma

REACTIONS (3)
  - Liver injury [Unknown]
  - Off label use [Unknown]
  - Product use issue [Unknown]

NARRATIVE: CASE EVENT DATE: 20241029
